FAERS Safety Report 18169001 (Version 4)
Quarter: 2020Q3

REPORT INFORMATION
  Report Type: Report from Study
  Country: NO (occurrence: NO)
  Receive Date: 20200819
  Receipt Date: 20200904
  Transmission Date: 20201103
  Serious: Yes (Death, Hospitalization, Disabling)
  Sender: FDA-Public Use
  Company Number: NO-KARYOPHARM-2020KPT000905

PATIENT
  Age: 59 Year
  Sex: Female
  Weight: 58 kg

DRUGS (28)
  1. NATRON [Concomitant]
     Indication: ACIDOSIS
     Dosage: 1 G
     Dates: start: 20200724, end: 20200805
  2. DEXAMETHASONE. [Concomitant]
     Active Substance: DEXAMETHASONE
     Indication: PLASMA CELL MYELOMA
     Dosage: 40 MG, WEEKLY
     Dates: start: 20200705, end: 20200724
  3. RASBURICASE [Concomitant]
     Active Substance: RASBURICASE
     Indication: TUMOUR LYSIS SYNDROME
     Dosage: 6 TO 10.5 MG, PRN
     Route: 042
     Dates: start: 20200724, end: 20200813
  4. IMNOVID [Concomitant]
     Active Substance: POMALIDOMIDE
     Dosage: 3 MG, QD
     Dates: start: 20200807, end: 20200810
  5. CYCLOPHOSPHAMIDE DCI [Concomitant]
     Active Substance: CYCLOPHOSPHAMIDE
     Indication: PLASMA CELL MYELOMA
     Dosage: 200 MG, WEEKLY
     Route: 048
     Dates: start: 20200705, end: 20200724
  6. NOVORAPID [Concomitant]
     Active Substance: INSULIN ASPART
     Indication: HYPERKALAEMIA
     Dosage: UNK
     Route: 042
     Dates: start: 20200723, end: 20200727
  7. DEXAMETHASONE. [Concomitant]
     Active Substance: DEXAMETHASONE
     Dosage: 40 MG, WEEKLY
     Dates: start: 20200807, end: 20200814
  8. CEFOTAXIME [Concomitant]
     Active Substance: CEFOTAXIME SODIUM
     Indication: INFECTION
     Dosage: 1 G, SINGLE
     Route: 042
     Dates: start: 20200723, end: 20200724
  9. TARGINIQ ER [Concomitant]
     Active Substance: NALOXONE HYDROCHLORIDE\OXYCODONE HYDROCHLORIDE
     Indication: PAIN
     Dosage: 20 MG/10 MG
     Dates: start: 20200705, end: 20200810
  10. LYRICA [Concomitant]
     Active Substance: PREGABALIN
     Dosage: 25 MG
     Dates: start: 20200724, end: 20200810
  11. FUROSEMIDE. [Concomitant]
     Active Substance: FUROSEMIDE
     Indication: DIURETIC THERAPY
     Dosage: 40 TO 80 MG
     Route: 042
     Dates: start: 20200729, end: 20200813
  12. ALBYL?E [Concomitant]
     Active Substance: ASPIRIN\MAGNESIUM OXIDE
     Indication: THROMBOSIS PROPHYLAXIS
     Dosage: 75 MG, QD
     Route: 048
     Dates: start: 20200702, end: 20200725
  13. NATRON [Concomitant]
     Indication: ACUTE KIDNEY INJURY
  14. BURINEX [Concomitant]
     Active Substance: BUMETANIDE
     Indication: DIURETIC THERAPY
     Dosage: 2 MG, SINGLE
     Dates: start: 20200807, end: 20200811
  15. IMNOVID [Concomitant]
     Active Substance: POMALIDOMIDE
     Indication: PLASMA CELL MYELOMA
     Dosage: 4 MG, QD
     Dates: start: 20200507, end: 20200724
  16. LYRICA [Concomitant]
     Active Substance: PREGABALIN
     Indication: PAIN
     Dosage: 75 MG
     Dates: start: 20200507, end: 20200724
  17. PARACETAMOL [Concomitant]
     Active Substance: ACETAMINOPHEN
     Indication: PAIN
     Dosage: 1 G
     Dates: start: 20190425, end: 20200810
  18. METOCLOPRAMIDE. [Concomitant]
     Active Substance: METOCLOPRAMIDE
     Indication: NAUSEA
     Dosage: 5 MG, PRN
     Dates: start: 20200728, end: 20200814
  19. ONDANSETRON [Concomitant]
     Active Substance: ONDANSETRON
     Indication: NAUSEA
     Dosage: 8 MG, PRN
     Route: 042
     Dates: start: 20200801, end: 20200813
  20. SELINEXOR [Suspect]
     Active Substance: SELINEXOR
     Indication: PLASMA CELL MYELOMA
     Dosage: 60 MG, WEEKLY
     Route: 048
     Dates: start: 20200807, end: 20200810
  21. ALLOPURINOL. [Concomitant]
     Active Substance: ALLOPURINOL
     Indication: TUMOUR LYSIS SYNDROME
     Dosage: 200 MG
     Dates: start: 20200724, end: 20200810
  22. LOKELMA [Concomitant]
     Active Substance: SODIUM ZIRCONIUM CYCLOSILICATE
     Indication: HYPERKALAEMIA
     Dosage: 5 MG, SINGLE
     Dates: start: 20200724, end: 20200806
  23. VALTREX [Concomitant]
     Active Substance: VALACYCLOVIR HYDROCHLORIDE
     Indication: PROPHYLAXIS
     Dosage: 250 MG
     Dates: start: 20200702, end: 20200724
  24. VALTREX [Concomitant]
     Active Substance: VALACYCLOVIR HYDROCHLORIDE
     Dosage: 250 UNK
     Dates: start: 20200724, end: 20200810
  25. SOMAC [Concomitant]
     Active Substance: PANTOPRAZOLE SODIUM
     Indication: PEPTIC ULCER
     Dosage: 20 MG, SINGLE
     Dates: start: 20180602, end: 20200810
  26. AKYNZEO [Concomitant]
     Active Substance: NETUPITANT\PALONOSETRON HYDROCHLORIDE
     Indication: NAUSEA
     Dosage: 300 MG/0.5 MG, WEEKLY
     Dates: start: 20200807, end: 20200808
  27. GLUCOSE [Concomitant]
     Active Substance: DEXTROSE
     Indication: BLOOD GLUCOSE DECREASED
  28. POMALIDOMIDE [Concomitant]
     Active Substance: POMALIDOMIDE
     Indication: PLASMA CELL MYELOMA
     Dosage: UNK
     Dates: start: 20200807

REACTIONS (2)
  - Tumour lysis syndrome [Not Recovered/Not Resolved]
  - Plasma cell myeloma [Fatal]

NARRATIVE: CASE EVENT DATE: 20200808
